FAERS Safety Report 19089386 (Version 2)
Quarter: 2021Q2

REPORT INFORMATION
  Report Type: Report from Study
  Country: UG (occurrence: UG)
  Receive Date: 20210403
  Receipt Date: 20210514
  Transmission Date: 20210717
  Serious: Yes (Hospitalization, Other)
  Sender: FDA-Public Use
  Company Number: UG-CIPLA LTD.-2021UG02484

PATIENT

DRUGS (2)
  1. ABACAVIR/LAMIVUDINE [Suspect]
     Active Substance: ABACAVIR\LAMIVUDINE
     Indication: HIV INFECTION WHO CLINICAL STAGE IV
     Dosage: 1.5 DOSAGE FORM, BID (90MG/45MG BID DAILY)
     Route: 048
     Dates: start: 20170803, end: 20181217
  2. LOPINAVIR/RITONAVIR [Suspect]
     Active Substance: LOPINAVIR\RITONAVIR
     Indication: HIV INFECTION WHO CLINICAL STAGE IV
     Dosage: 3 DOSAGE FORM, BID (120MG/30MG BID DAILY)
     Route: 048
     Dates: start: 20170803, end: 20181217

REACTIONS (2)
  - Pneumonia [Recovered/Resolved]
  - Diarrhoea [Recovered/Resolved]

NARRATIVE: CASE EVENT DATE: 20170902
